FAERS Safety Report 11072407 (Version 1)
Quarter: 2015Q2

REPORT INFORMATION
  Report Type: Spontaneous
  Country: IT (occurrence: IT)
  Receive Date: 20150428
  Receipt Date: 20150428
  Transmission Date: 20150821
  Serious: Yes (Hospitalization)
  Sender: FDA-Public Use
  Company Number: IT-TEVA-557341ACC

PATIENT
  Age: 83 Year
  Sex: Male

DRUGS (8)
  1. APROVEL - COMPRESSE 150 MG [Concomitant]
     Indication: HYPERTENSION
     Dosage: 150 MG
     Route: 048
     Dates: start: 20101126
  2. MODURETIC - 5 MG + 50 MG COMPRESSE [Concomitant]
     Indication: HYPERTENSION
     Dosage: 1 DF
     Route: 048
     Dates: start: 20140616
  3. FOLINA - 5 MG CAPSULE MOLLI [Concomitant]
     Indication: FOLATE DEFICIENCY
     Dosage: 1 DF (CAPSULE, SOFT)
     Route: 048
     Dates: start: 20130513
  4. LASIX [Suspect]
     Active Substance: FUROSEMIDE
     Indication: HYPERTENSION
     Dosage: 25 MILLIGRAM DAILY;
     Route: 048
     Dates: start: 20101126, end: 20150304
  5. RYTMONORM - 425 MG CAPSULE RIGIDE A RILASCIO PROLUNGATO [Concomitant]
     Indication: CARDIAC DISORDER
     Dosage: 850 MG (PROLONGED-RELEASE CAPSULE, HARD)
     Route: 048
     Dates: start: 20101126
  6. LIPONORM -  20 MG COMPRESSE RIVESTITE CON FILM [Concomitant]
     Active Substance: ATORVASTATIN
     Indication: HYPERLIPIDAEMIA
     Dosage: 10 UG
     Route: 048
     Dates: start: 20040813
  7. ACETYLSALICYLIC ACID [Concomitant]
     Active Substance: ASPIRIN
     Indication: CARDIAC DISORDER
     Dosage: 100 MG
     Route: 048
     Dates: start: 20101126
  8. PAROXETINE [Suspect]
     Active Substance: PAROXETINE\PAROXETINE HYDROCHLORIDE
     Indication: DEPRESSION
     Dosage: 10 MILLIGRAM DAILY;
     Route: 048
     Dates: start: 20140616, end: 20150304

REACTIONS (2)
  - Hyponatraemia [Recovering/Resolving]
  - Ataxia [Recovering/Resolving]

NARRATIVE: CASE EVENT DATE: 20150304
